FAERS Safety Report 9131177 (Version 1)
Quarter: 2013Q1

REPORT INFORMATION
  Report Type: Spontaneous
  Country: US (occurrence: US)
  Receive Date: 20130301
  Receipt Date: 20130301
  Transmission Date: 20140127
  Serious: No
  Sender: FDA-Public Use
  Company Number: US-009507513-1302USA013213

PATIENT
  Sex: Female

DRUGS (4)
  1. RIBAVIRIN [Suspect]
     Indication: HEPATITIS C
     Dosage: UNK
     Dates: start: 19950101, end: 19950601
  2. RIBAVIRIN [Suspect]
     Dosage: UNK
     Dates: start: 20000101, end: 20000301
  3. INTERFERON (UNSPECIFIED) [Suspect]
     Indication: HEPATITIS C
     Dosage: UNK UNK, QW
     Dates: start: 19950101, end: 19950601
  4. INTERFERON (UNSPECIFIED) [Suspect]
     Dosage: UNK, QW
     Dates: start: 20000101, end: 20000301

REACTIONS (7)
  - Leukopenia [Unknown]
  - Bone pain [Unknown]
  - Influenza like illness [Unknown]
  - Drug ineffective [Unknown]
  - Drug ineffective [Unknown]
  - Anaemia [Unknown]
  - Anaemia [Unknown]
